FAERS Safety Report 7268074-0 (Version None)
Quarter: 2011Q1

REPORT INFORMATION
  Report Type: 
  Country: None (occurrence: None)
  Receive Date: 20110201
  Receipt Date: 20110125
  Transmission Date: 20110831
  Serious: Yes (Other)
  Sender: FDA-Public Use
  Company Number: JP-PFIZER INC-2011012494

PATIENT
  Age: 60 Year
  Sex: Female
  Weight: 47 kg

DRUGS (6)
  1. SOLU-MEDROL [Suspect]
     Indication: CEREBELLAR TUMOUR
     Dosage: 80 MG, 1X/DAY
     Route: 041
     Dates: start: 20060831, end: 20060921
  2. IRINOTECAN HYDROCHLORIDE [Concomitant]
  3. PACLITAXEL [Concomitant]
  4. SOLU-MEDROL [Suspect]
     Dosage: 40 MG, 1X/DAY
     Route: 041
     Dates: start: 20060922, end: 20061101
  5. SOLU-MEDROL [Suspect]
     Dosage: 10 MG, 1X/DAY
     Route: 041
     Dates: start: 20061102
  6. CARBOPLATIN [Concomitant]

REACTIONS (1)
  - PNEUMATOSIS INTESTINALIS [None]
